FAERS Safety Report 11395053 (Version 1)
Quarter: 2015Q3

REPORT INFORMATION
  Report Type: Spontaneous
  Country: BR (occurrence: BR)
  Receive Date: 20150819
  Receipt Date: 20150819
  Transmission Date: 20151125
  Serious: Yes (Other)
  Sender: FDA-Public Use
  Company Number: BR-JNJFOC-20150810754

PATIENT
  Age: 32 Year
  Sex: Male

DRUGS (4)
  1. REMICADE [Suspect]
     Active Substance: INFLIXIMAB
     Indication: RHEUMATOID ARTHRITIS
     Dosage: TREATMENT WEEK 2 + 3 AMPLOUES PER INFUSION
     Route: 042
     Dates: start: 20150729
  2. REMICADE [Suspect]
     Active Substance: INFLIXIMAB
     Indication: RHEUMATOID ARTHRITIS
     Dosage: TREATMENT WEEK 0 + 3 AMPLOUES PER INFUSION
     Route: 042
     Dates: start: 20150714
  3. REMICADE [Suspect]
     Active Substance: INFLIXIMAB
     Indication: ANKYLOSING SPONDYLITIS
     Dosage: TREATMENT WEEK 0 + 3 AMPLOUES PER INFUSION
     Route: 042
     Dates: start: 20150714
  4. REMICADE [Suspect]
     Active Substance: INFLIXIMAB
     Indication: ANKYLOSING SPONDYLITIS
     Dosage: TREATMENT WEEK 2 + 3 AMPLOUES PER INFUSION
     Route: 042
     Dates: start: 20150729

REACTIONS (4)
  - Rheumatoid arthritis [Not Recovered/Not Resolved]
  - Ankylosing spondylitis [Not Recovered/Not Resolved]
  - Immobile [Not Recovered/Not Resolved]
  - Drug effect decreased [Unknown]

NARRATIVE: CASE EVENT DATE: 201508
